FAERS Safety Report 6583017-0 (Version None)
Quarter: 2010Q1

REPORT INFORMATION
  Report Type: 
  Country: None (occurrence: None)
  Receive Date: 20100216
  Receipt Date: 20100210
  Transmission Date: 20100710
  Serious: Yes (Life-Threatening, Hospitalization)
  Sender: FDA-Public Use
  Company Number: BR-ROCHE-658147

PATIENT
  Sex: Female
  Weight: 65.5 kg

DRUGS (8)
  1. TRASTUZUMAB [Suspect]
     Dosage: LOADING DOSE, FORM: INFUSION
     Route: 042
  2. TRASTUZUMAB [Suspect]
     Dosage: LAST DOSE PRIOR TO SAE ON 31 AUGUST 2009. FORM: INFUSION
     Route: 042
     Dates: start: 20090427, end: 20090921
  3. TRASTUZUMAB [Suspect]
     Dosage: THERAPY: PERMANENTLY DISCONTINUED.
     Route: 042
     Dates: end: 20091019
  4. DOCETAXEL [Suspect]
     Dosage: FORM:INFUSION. LAST DOSE PRIOR TO SAE ON 31 AUGUST 2009
     Route: 042
     Dates: start: 20090428, end: 20090921
  5. DOCETAXEL [Suspect]
     Dosage: THERAPY: PERMANENTLY DISCONTINUED.
     Route: 042
     Dates: end: 20091019
  6. OMEPRAZOLE [Concomitant]
     Dates: start: 20090518
  7. CLONAZEPAM [Concomitant]
     Dates: start: 20090415, end: 20091006
  8. DORFLEX [Concomitant]
     Dosage: TDD: 1 CP
     Dates: start: 20090815, end: 20090921

REACTIONS (3)
  - HEPATIC VEIN THROMBOSIS [None]
  - PULMONARY EMBOLISM [None]
  - VENA CAVA THROMBOSIS [None]
